FAERS Safety Report 23716976 (Version 3)
Quarter: 2024Q2

REPORT INFORMATION
  Report Type: Spontaneous
  Country: JP (occurrence: JP)
  Receive Date: 20240408
  Receipt Date: 20240520
  Transmission Date: 20240716
  Serious: Yes (Other)
  Sender: FDA-Public Use
  Company Number: JP-MSD-2404JPN000419J

PATIENT
  Age: 70 Year
  Sex: Male

DRUGS (4)
  1. ZOLINZA [Suspect]
     Active Substance: VORINOSTAT
     Indication: Cutaneous T-cell lymphoma stage IV
     Dosage: UNK
     Route: 065
  2. ZOLINZA [Suspect]
     Active Substance: VORINOSTAT
     Dosage: UNK
     Route: 065
  3. ZOLINZA [Suspect]
     Active Substance: VORINOSTAT
     Dosage: UNK
     Route: 065
  4. METHYLPREDNISOLONE [Concomitant]
     Active Substance: METHYLPREDNISOLONE
     Dosage: 0.5 MILLIGRAM/KILOGRAM
     Route: 065

REACTIONS (3)
  - Malignant neoplasm progression [Unknown]
  - Decreased appetite [Unknown]
  - Decreased appetite [Unknown]
